FAERS Safety Report 8128095-2 (Version None)
Quarter: 2012Q1

REPORT INFORMATION
  Report Type: 
  Country: None (occurrence: None)
  Receive Date: 20120210
  Receipt Date: 20120207
  Transmission Date: 20120608
  Serious: Yes (Life-Threatening, Hospitalization)
  Sender: FDA-Public Use
  Company Number: JP-JNJFOC-20120200991

PATIENT
  Sex: Male
  Weight: 60 kg

DRUGS (9)
  1. MICONAZOLE [Suspect]
     Indication: ORAL DISCOMFORT
     Route: 049
     Dates: start: 20111201
  2. MICONAZOLE [Suspect]
     Dosage: 5 G 3 TIMES A DAY
     Route: 049
     Dates: start: 20110801
  3. CLARITHROMYCIN [Concomitant]
     Route: 048
     Dates: start: 20100312, end: 20120119
  4. WARFARIN SODIUM [Interacting]
     Indication: ATRIAL FIBRILLATION
     Route: 048
     Dates: start: 20100226
  5. COUGHNOL [Concomitant]
     Indication: CHRONIC OBSTRUCTIVE PULMONARY DISEASE
     Route: 048
     Dates: start: 20090901
  6. WARFARIN SODIUM [Interacting]
     Route: 048
  7. CLARITHROMYCIN [Concomitant]
     Indication: CHRONIC OBSTRUCTIVE PULMONARY DISEASE
     Route: 048
     Dates: start: 20120119
  8. MICONAZOLE [Suspect]
     Route: 049
     Dates: start: 20120115
  9. VERAPAMIL HCL [Concomitant]
     Indication: TACHYARRHYTHMIA
     Route: 048
     Dates: start: 20100223

REACTIONS (4)
  - DRUG INTERACTION [None]
  - HAEMORRHAGE SUBCUTANEOUS [None]
  - INTERNATIONAL NORMALISED RATIO INCREASED [None]
  - EPISTAXIS [None]
